FAERS Safety Report 7611244-X (Version None)
Quarter: 2011Q3

REPORT INFORMATION
  Report Type: 
  Country: None (occurrence: None)
  Receive Date: 20110715
  Receipt Date: 20110531
  Transmission Date: 20111222
  Serious: Yes (Other)
  Sender: FDA-Public Use
  Company Number: AR-TYCO HEALTHCARE/MALLINCKRODT-T201101360

PATIENT

DRUGS (1)
  1. CONRAY [Suspect]
     Indication: IMAGING PROCEDURE
     Route: 065

REACTIONS (4)
  - PHLEBITIS [None]
  - FEELING HOT [None]
  - DRY MOUTH [None]
  - INJECTION SITE INFLAMMATION [None]
